FAERS Safety Report 21018924 (Version 4)
Quarter: 2022Q4

REPORT INFORMATION
  Report Type: Report from Study
  Country: CN (occurrence: CN)
  Receive Date: 20220628
  Receipt Date: 20221220
  Transmission Date: 20230113
  Serious: Yes (Hospitalization)
  Sender: FDA-Public Use
  Company Number: CN-PFIZER INC-PV202200006947

PATIENT
  Age: 42 Year
  Sex: Male
  Weight: 53 kg

DRUGS (10)
  1. REVATIO [Suspect]
     Active Substance: SILDENAFIL CITRATE
     Indication: Pulmonary arterial hypertension
     Dosage: 20 MILLIGRAM, TID
     Route: 048
     Dates: start: 20220507
  2. BOSENTAN [Concomitant]
     Active Substance: BOSENTAN
     Indication: Pulmonary arterial hypertension
     Dosage: 62.5 MG, 2X/DAY
     Route: 048
     Dates: start: 20220524
  3. BOSENTAN [Concomitant]
     Active Substance: BOSENTAN
     Dosage: 62.5 MG, TWICE PER DAY
     Route: 065
     Dates: start: 20220506
  4. DIGOXIN [Concomitant]
     Active Substance: DIGOXIN
     Indication: Cardiac failure
     Dosage: UNK
     Route: 048
     Dates: start: 20220524
  5. SPIRONOLACTONE [Concomitant]
     Active Substance: SPIRONOLACTONE
     Indication: Cardiac failure
     Dosage: 20 MILLIGRAM, QD
     Route: 048
     Dates: start: 20220524
  6. ORYZANOL [Concomitant]
     Active Substance: GAMMA ORYZANOL
     Indication: Prophylaxis
     Dosage: UNK
     Route: 048
     Dates: start: 20220524
  7. ALPRAZOLAM [Concomitant]
     Active Substance: ALPRAZOLAM
     Indication: Insomnia
     Dosage: 0.4 MG, 1X/DAY (QN)
     Route: 065
     Dates: start: 20220619
  8. POTASSIUM CHLORIDE [Concomitant]
     Active Substance: POTASSIUM CHLORIDE
     Indication: Cardiac failure
     Dosage: 0.5 MILLIGRAM, BID
     Route: 048
     Dates: start: 20220618
  9. MAGNESIUM ASPARTATE\POTASSIUM ASPARTATE [Concomitant]
     Active Substance: MAGNESIUM ASPARTATE\POTASSIUM ASPARTATE
     Indication: Cardiac failure
     Dosage: 10 MILLILITER, QD
     Route: 065
     Dates: start: 20220618
  10. FUROSEMIDE [Concomitant]
     Active Substance: FUROSEMIDE
     Indication: Cardiac failure
     Dosage: 20 MILLIGRAM, QD
     Route: 065
     Dates: start: 20220618

REACTIONS (1)
  - Cardiac failure acute [Recovered/Resolved]

NARRATIVE: CASE EVENT DATE: 20220618
